FAERS Safety Report 25775719 (Version 1)
Quarter: 2025Q3

REPORT INFORMATION
  Report Type: Spontaneous
  Country: CA (occurrence: CA)
  Receive Date: 20250909
  Receipt Date: 20250909
  Transmission Date: 20251020
  Serious: Yes (Other)
  Sender: GE HEALTHCARE
  Company Number: CA-GE HEALTHCARE-2025CSU012327

PATIENT
  Age: 66 Year
  Sex: Female

DRUGS (1)
  1. OMNIPAQUE [Suspect]
     Active Substance: IOHEXOL
     Indication: Computerised tomogram abdomen
     Route: 042
     Dates: start: 20250830, end: 20250830

REACTIONS (5)
  - Dysphonia [Recovered/Resolved]
  - Rhinorrhoea [Recovered/Resolved]
  - Sneezing [Recovered/Resolved]
  - Pharyngeal paraesthesia [Recovered/Resolved]
  - Erythema [Recovered/Resolved]

NARRATIVE: CASE EVENT DATE: 20250830
